FAERS Safety Report 23197211 (Version 1)
Quarter: 2023Q4

REPORT INFORMATION
  Report Type: Report from Study
  Country: PL (occurrence: PL)
  Receive Date: 20231117
  Receipt Date: 20231117
  Transmission Date: 20240109
  Serious: Yes (Hospitalization)
  Sender: FDA-Public Use
  Company Number: PL-PFIZER INC-202300176044

PATIENT
  Age: 55 Year
  Sex: Male
  Weight: 145 kg

DRUGS (4)
  1. ELRANATAMAB [Suspect]
     Active Substance: ELRANATAMAB
     Indication: Plasma cell myeloma
     Dosage: 12.0 MG, ONCE
     Route: 058
     Dates: start: 20230320, end: 20230320
  2. ELRANATAMAB [Suspect]
     Active Substance: ELRANATAMAB
     Dosage: 32.0 MG, ONCE
     Route: 058
     Dates: start: 20230322, end: 20230322
  3. ELRANATAMAB [Suspect]
     Active Substance: ELRANATAMAB
     Dosage: 76.0 MG, WEEKLY
     Route: 058
     Dates: start: 20230328, end: 20230417
  4. DARATUMUMAB [Suspect]
     Active Substance: DARATUMUMAB
     Indication: Plasma cell myeloma
     Dosage: 1800.0 MG, WEEKLY
     Route: 058
     Dates: start: 20230411, end: 20230417

REACTIONS (1)
  - Circulatory collapse [Recovered/Resolved]

NARRATIVE: CASE EVENT DATE: 20230424
